FAERS Safety Report 7220980-9 (Version None)
Quarter: 2011Q1

REPORT INFORMATION
  Report Type: 
  Country: None (occurrence: None)
  Receive Date: 20110112
  Receipt Date: 20110104
  Transmission Date: 20110831
  Serious: Yes (Hospitalization)
  Sender: FDA-Public Use
  Company Number: PHFR2011GB00447

PATIENT
  Sex: Male

DRUGS (5)
  1. DIAZEPAM [Concomitant]
     Dosage: UNK
  2. PROMETHAZINE [Concomitant]
  3. CLOZARIL [Suspect]
     Indication: SCHIZOPHRENIA
     Dosage: 500 MG, QD
     Route: 048
     Dates: start: 20080308
  4. METFORMIN [Concomitant]
  5. SIMVASTATIN [Concomitant]

REACTIONS (3)
  - EPILEPSY [None]
  - CONFUSIONAL STATE [None]
  - HEPATITIS C VIRUS TEST POSITIVE [None]
